FAERS Safety Report 5603408-1 (Version None)
Quarter: 2008Q1

REPORT INFORMATION
  Report Type: 
  Country: None (occurrence: None)
  Receive Date: 20080122
  Receipt Date: 20080109
  Transmission Date: 20080703
  Serious: Yes (Hospitalization)
  Sender: FDA-Public Use
  Company Number: 2008-170276-NL

PATIENT
  Age: 44 Year
  Sex: Female

DRUGS (12)
  1. MIRTAZAPINE [Suspect]
     Indication: DEPRESSION
     Dosage: 15 MG/30 MG ORAL
     Route: 048
     Dates: start: 20070925, end: 20070930
  2. MIRTAZAPINE [Suspect]
     Indication: DEPRESSION
     Dosage: 15 MG/30 MG ORAL
     Route: 048
     Dates: start: 20070801, end: 20071005
  3. CLOMIPRAMINE HYDROCHLORIDE [Suspect]
     Indication: DEPRESSION
     Dosage: 75 MG/150 MG/ 75 MG ORAL
     Route: 048
     Dates: start: 20070715, end: 20070801
  4. CLOMIPRAMINE HYDROCHLORIDE [Suspect]
     Indication: DEPRESSION
     Dosage: 75 MG/150 MG/ 75 MG ORAL
     Route: 048
     Dates: start: 20070801, end: 20070925
  5. CLOMIPRAMINE HYDROCHLORIDE [Suspect]
     Indication: DEPRESSION
     Dosage: 75 MG/150 MG/ 75 MG ORAL
     Route: 048
     Dates: start: 20070926, end: 20071004
  6. PARACETAMOL [Suspect]
     Dosage: 4 G PRN ORAL
     Route: 048
     Dates: start: 20070715, end: 20071005
  7. TRAMADOL HCL [Concomitant]
  8. CLORAZEPATE DIPOTASSIUM [Concomitant]
  9. MILNACIPRAN [Concomitant]
  10. IXPRIM [Concomitant]
  11. LAMALINE /OLD FORM/ [Concomitant]
  12. PREGABALIN [Concomitant]

REACTIONS (1)
  - HEPATITIS [None]
